FAERS Safety Report 24902547 (Version 1)
Quarter: 2025Q1

REPORT INFORMATION
  Report Type: Spontaneous
  Country: JP (occurrence: JP)
  Receive Date: 20250130
  Receipt Date: 20250130
  Transmission Date: 20250409
  Serious: Yes (Other)
  Sender: BRISTOL-MYERS SQUIBB COMPANY
  Company Number: JP-TAKEDA-2025TJP000716

PATIENT

DRUGS (2)
  1. NIVOLUMAB [Suspect]
     Active Substance: NIVOLUMAB
     Indication: Metastatic renal cell carcinoma
  2. CABOMETYX [Suspect]
     Active Substance: CABOZANTINIB S-MALATE
     Indication: Metastatic renal cell carcinoma
     Route: 048

REACTIONS (19)
  - Liver disorder [Unknown]
  - Interstitial lung disease [Unknown]
  - Hyponatraemia [Unknown]
  - Hypothyroidism [Unknown]
  - Hypokalaemia [Unknown]
  - Gastrointestinal haemorrhage [Unknown]
  - Proteinuria [Unknown]
  - Arthritis [Unknown]
  - Alopecia [Unknown]
  - Dry mouth [Unknown]
  - Taste disorder [Unknown]
  - Malaise [Unknown]
  - Platelet count decreased [Unknown]
  - Diarrhoea [Unknown]
  - Rash [Unknown]
  - Palmar-plantar erythrodysaesthesia syndrome [Unknown]
  - Hypertension [Unknown]
  - Decreased appetite [Unknown]
  - Stomatitis [Unknown]
